FAERS Safety Report 16076935 (Version 1)
Quarter: 2019Q2

REPORT INFORMATION
  Report Type: Spontaneous
  Country: US (occurrence: US)
  Receive Date: 20190314
  Receipt Date: 20190314
  Transmission Date: 20190711
  Serious: Yes (Death)
  Sender: FDA-Public Use
  Company Number: None

PATIENT
  Sex: Female

DRUGS (2)
  1. PRENATAL+DHA [Concomitant]
  2. HYDROXYPROGESTERONE [Suspect]
     Active Substance: HYDROXYPROGESTERONE
     Indication: HIGH RISK PREGNANCY
     Dosage: ?          OTHER FREQUENCY:(EVERY 7 DAYS);?
     Route: 030

REACTIONS (1)
  - Death [None]
